FAERS Safety Report 6703212-7 (Version None)
Quarter: 2010Q2

REPORT INFORMATION
  Report Type: 
  Country: None (occurrence: None)
  Receive Date: 20100430
  Receipt Date: 20100421
  Transmission Date: 20101027
  Serious: Yes (Life-Threatening)
  Sender: FDA-Public Use
  Company Number: JP-ABBOTT-10P-087-0640768-00

PATIENT
  Sex: Female

DRUGS (5)
  1. SEVOFLURANE [Suspect]
     Indication: GENERAL ANAESTHESIA
     Dosage: 1% X 6L/MIN, 250ML
     Route: 055
     Dates: start: 20081104, end: 20081104
  2. REMIFENTANIL HYDROCHLORIDE [Suspect]
     Indication: GENERAL ANAESTHESIA
     Route: 042
     Dates: start: 20081104, end: 20081104
  3. PROPOFOL [Suspect]
     Indication: INDUCTION OF ANAESTHESIA
     Route: 042
     Dates: start: 20081104, end: 20081104
  4. ROCURONIUM BROMIDE [Suspect]
     Indication: MUSCLE RELAXANT THERAPY
     Dosage: 30MG X 1, 10MG X 6
     Route: 042
     Dates: start: 20081104, end: 20081104
  5. ETILEFRINE [Suspect]
     Indication: HYPOTENSION
     Dosage: 1MG X4
     Route: 042
     Dates: start: 20081104, end: 20081104

REACTIONS (2)
  - VENTRICULAR EXTRASYSTOLES [None]
  - VENTRICULAR TACHYCARDIA [None]
